FAERS Safety Report 9834301 (Version 1)
Quarter: 2014Q1

REPORT INFORMATION
  Report Type: Spontaneous
  Country: FI (occurrence: FI)
  Receive Date: 20140122
  Receipt Date: 20140122
  Transmission Date: 20141002
  Serious: Yes (Hospitalization)
  Sender: FDA-Public Use
  Company Number: FI-SA-2014SA007076

PATIENT
  Age: 60 Year
  Sex: Male

DRUGS (7)
  1. ZALTRAP [Suspect]
     Indication: RECTAL CANCER
     Route: 042
     Dates: start: 20131217, end: 20131217
  2. ZALTRAP [Suspect]
     Indication: RECTAL CANCER
     Route: 042
  3. IRINOTECAN [Concomitant]
  4. FLUOROURACIL [Concomitant]
  5. LEUCOVORIN [Concomitant]
  6. GRANISETRON [Concomitant]
     Indication: NAUSEA
     Route: 042
     Dates: start: 20131217, end: 20131217
  7. ORADEXON [Concomitant]
     Indication: NAUSEA
     Route: 042
     Dates: start: 20131217, end: 20131217

REACTIONS (3)
  - Hypersensitivity [Recovered/Resolved]
  - Back pain [Recovered/Resolved]
  - Dyspnoea [Recovered/Resolved]
